FAERS Safety Report 21070918 (Version 1)
Quarter: 2022Q3

REPORT INFORMATION
  Report Type: Spontaneous
  Country: VE (occurrence: None)
  Receive Date: 20220711
  Receipt Date: 20220711
  Transmission Date: 20221027
  Serious: Yes (Other)
  Sender: FDA-Public Use
  Company Number: None

PATIENT
  Age: 61 Year
  Sex: Male
  Weight: 73 kg

DRUGS (1)
  1. NEPAFENAC [Suspect]
     Active Substance: NEPAFENAC
     Indication: Posterior lens capsulotomy
     Dosage: FREQUENCY : 3 TIMES A DAY;?
     Route: 031
     Dates: start: 202303

REACTIONS (2)
  - Labyrinthitis [None]
  - Headache [None]

NARRATIVE: CASE EVENT DATE: 20220708
